FAERS Safety Report 23587873 (Version 1)
Quarter: 2024Q1

REPORT INFORMATION
  Report Type: Spontaneous
  Country: US (occurrence: US)
  Receive Date: 20240301
  Receipt Date: 20240301
  Transmission Date: 20240410
  Serious: No
  Sender: FDA-Public Use
  Company Number: US-BAUSCHBL-2024BNL002339

PATIENT
  Age: 64 Year
  Sex: Female

DRUGS (3)
  1. LACRISERT [Suspect]
     Active Substance: HYDROXYPROPYL CELLULOSE
     Indication: Dry eye
     Dosage: ABOUT 6-8 YEARS PRIOR
     Route: 047
  2. XIIDRA [Suspect]
     Active Substance: LIFITEGRAST
     Indication: Dry eye
     Dosage: FOR 6-7 MONTHS
     Route: 047
     Dates: start: 2022, end: 2023
  3. SYSTANE (HYPROMELLOSE 2910 (4000 MPA.S)) [Suspect]
     Active Substance: HYPROMELLOSE 2910 (4000 MPA.S)
     Indication: Product used for unknown indication
     Dosage: AS NEEDED
     Route: 065

REACTIONS (6)
  - Quality of life decreased [Unknown]
  - Impaired driving ability [Unknown]
  - Photophobia [Unknown]
  - Drug ineffective [Unknown]
  - Product availability issue [Unknown]
  - Intentional product misuse [Unknown]
